FAERS Safety Report 18840560 (Version 6)
Quarter: 2021Q4

REPORT INFORMATION
  Report Type: Report from Study
  Country: US (occurrence: US)
  Receive Date: 20210203
  Receipt Date: 20211208
  Transmission Date: 20220303
  Serious: Yes (Other)
  Sender: FDA-Public Use
  Company Number: NVSC2021US017659

PATIENT
  Age: 67 Year
  Sex: Female
  Weight: 64.853 kg

DRUGS (3)
  1. COSENTYX [Suspect]
     Active Substance: SECUKINUMAB
     Indication: Ankylosing spondylitis
     Dosage: UNK UNK, QMO (DOSE 4) (STARTER DOSING)
     Route: 065
     Dates: start: 20210107
  2. COSENTYX [Suspect]
     Active Substance: SECUKINUMAB
     Dosage: UNK
     Route: 065
     Dates: start: 20210115
  3. COSENTYX [Suspect]
     Active Substance: SECUKINUMAB
     Dosage: 150 MG, QMO
     Route: 058

REACTIONS (6)
  - Lower respiratory tract infection [Recovered/Resolved]
  - Swollen tongue [Recovered/Resolved]
  - Respiration abnormal [Recovered/Resolved]
  - Hypersensitivity [Unknown]
  - Injection site pain [Unknown]
  - Drug ineffective [Not Recovered/Not Resolved]

NARRATIVE: CASE EVENT DATE: 20210117
